FAERS Safety Report 5769718-2 (Version None)
Quarter: 2008Q2

REPORT INFORMATION
  Report Type: 
  Country: None (occurrence: None)
  Receive Date: 20080612
  Receipt Date: 20080513
  Transmission Date: 20081010
  Serious: No
  Sender: FDA-Public Use
  Company Number: US-ABBOTT-08P-163-0445724-00

PATIENT
  Sex: Male

DRUGS (2)
  1. HUMIRA [Suspect]
     Indication: CROHN'S DISEASE
     Route: 058
     Dates: start: 20080403, end: 20080403
  2. HUMIRA [Suspect]
     Dosage: NOT REPORTED

REACTIONS (4)
  - ABDOMINAL PAIN [None]
  - FATIGUE [None]
  - MALAISE [None]
  - NAUSEA [None]
